FAERS Safety Report 26161842 (Version 1)
Quarter: 2025Q4

REPORT INFORMATION
  Report Type: Spontaneous
  Country: CN (occurrence: CN)
  Receive Date: 20251216
  Receipt Date: 20251216
  Transmission Date: 20260117
  Serious: Yes (Death, Life-Threatening, Hospitalization, Other)
  Sender: AUROBINDO
  Company Number: CN-MLMSERVICE-20251126-PI728709-00050-1

PATIENT
  Age: 86 Year
  Sex: Female

DRUGS (2)
  1. AMLODIPINE [Suspect]
     Active Substance: AMLODIPINE BESYLATE
     Indication: Hypertension
     Dosage: 5 MILLIGRAM
     Route: 061
  2. AMLODIPINE [Suspect]
     Active Substance: AMLODIPINE BESYLATE
     Dosage: 48 TABLETS OF AMLODIPINE (A TOTAL OF 240 MG)
     Route: 061

REACTIONS (7)
  - Distributive shock [Fatal]
  - Hypocalcaemia [Fatal]
  - Metabolic acidosis [Fatal]
  - Pneumonia [Fatal]
  - Pulseless electrical activity [Fatal]
  - Anuria [Fatal]
  - Accidental overdose [Fatal]

NARRATIVE: CASE EVENT DATE: 20241203
